FAERS Safety Report 20188855 (Version 1)
Quarter: 2021Q4

REPORT INFORMATION
  Report Type: Spontaneous
  Country: CA (occurrence: None)
  Receive Date: 20211215
  Receipt Date: 20211215
  Transmission Date: 20220303
  Serious: Yes (Other)
  Sender: FDA-Public Use
  Company Number: 2021A863355

PATIENT
  Age: 36 Year
  Sex: Male

DRUGS (1)
  1. SYMBICORT [Suspect]
     Active Substance: BUDESONIDE\FORMOTEROL FUMARATE DIHYDRATE
     Indication: Asthma
     Dosage: 2 INHALATIONS TWO TIMES A DAY
     Route: 055

REACTIONS (3)
  - Asthma [Unknown]
  - Drug ineffective [Recovered/Resolved]
  - Device malfunction [Unknown]
